FAERS Safety Report 4586737-2 (Version None)
Quarter: 2005Q1

REPORT INFORMATION
  Report Type: 
  Country: None (occurrence: None)
  Receive Date: 20050217
  Receipt Date: 20050217
  Transmission Date: 20050727
  Serious: Yes (Hospitalization, Other)
  Sender: FDA-Public Use
  Company Number: None

PATIENT
  Age: 55 Year
  Sex: Male
  Weight: 111.1313 kg

DRUGS (9)
  1. CELEBREX [Suspect]
     Indication: RHEUMATOID ARTHRITIS
     Dosage: 1 TAB EVERY DAY
     Dates: start: 20000901, end: 20041001
  2. METHOTREXATE [Concomitant]
  3. CARDURA [Concomitant]
  4. NORFLEX [Concomitant]
  5. PREDNISONE [Concomitant]
  6. SULFASALAZINE [Concomitant]
  7. METOPROLOL TARTRATE [Concomitant]
  8. BUSPAR [Concomitant]
  9. PAXIL [Concomitant]

REACTIONS (6)
  - ARTHRALGIA [None]
  - BACK PAIN [None]
  - CORONARY ARTERY OCCLUSION [None]
  - HEART RATE IRREGULAR [None]
  - MYOCARDIAL INFARCTION [None]
  - PALPITATIONS [None]
